FAERS Safety Report 7538738-X (Version None)
Quarter: 2011Q2

REPORT INFORMATION
  Report Type: 
  Country: None (occurrence: None)
  Receive Date: 20110610
  Receipt Date: 20110606
  Transmission Date: 20111010
  Serious: No
  Sender: FDA-Public Use
  Company Number: US-PFIZER INC-2011123378

PATIENT
  Sex: Female
  Weight: 83.9 kg

DRUGS (4)
  1. ADVIL LIQUI-GELS [Suspect]
     Indication: ARTHRITIS
     Dosage: UNK
     Route: 048
  2. ADVIL LIQUI-GELS [Suspect]
     Dosage: UNK
     Route: 048
  3. ADVIL LIQUI-GELS [Suspect]
     Indication: HEADACHE
  4. ADVIL LIQUI-GELS [Suspect]
     Indication: PAIN

REACTIONS (2)
  - DRUG INEFFECTIVE [None]
  - ABDOMINAL DISCOMFORT [None]
